FAERS Safety Report 24665796 (Version 1)
Quarter: 2024Q4

REPORT INFORMATION
  Report Type: Spontaneous
  Country: US (occurrence: US)
  Receive Date: 20241126
  Receipt Date: 20241126
  Transmission Date: 20250114
  Serious: Yes (Hospitalization)
  Sender: BAYER HEALTHCARE LLC
  Company Number: US-BAYER-2024A167840

PATIENT
  Age: 72 Year
  Sex: Female

DRUGS (1)
  1. ASPIRIN [Suspect]
     Active Substance: ASPIRIN
     Indication: Antiplatelet therapy

REACTIONS (1)
  - Gastrointestinal haemorrhage [None]
